FAERS Safety Report 5088005-1 (Version None)
Quarter: 2006Q3

REPORT INFORMATION
  Report Type: 
  Country: None (occurrence: None)
  Receive Date: 20060821
  Receipt Date: 20060810
  Transmission Date: 20061208
  Serious: Yes (Other)
  Sender: FDA-Public Use
  Company Number: 2006097491

PATIENT
  Age: 67 Year
  Sex: Female
  Weight: 54.4316 kg

DRUGS (1)
  1. TUCKS TOPICAL STARCH HEMORRHOIDAL SUPPOSITORIES (TOPICAL STARCH) [Suspect]
     Indication: HAEMORRHOIDS
     Dosage: 1-2 SUPPOSITORIES TWICE WEEKLY AS NEEDED, RECTAL
     Route: 054

REACTIONS (1)
  - COELIAC DISEASE [None]
